FAERS Safety Report 11907068 (Version 2)
Quarter: 2016Q1

REPORT INFORMATION
  Report Type: Report from Study
  Country: US (occurrence: US)
  Receive Date: 20160111
  Receipt Date: 20160122
  Transmission Date: 20160526
  Serious: Yes (Other)
  Sender: FDA-Public Use
  Company Number: US-JNJFOC-20151206731

PATIENT
  Sex: Female

DRUGS (13)
  1. NORVASC [Concomitant]
     Active Substance: AMLODIPINE BESYLATE
  2. HYDRALAZINE [Concomitant]
     Active Substance: HYDRALAZINE HYDROCHLORIDE
  3. PRIMIDONE. [Concomitant]
     Active Substance: PRIMIDONE
  4. ARTANE [Concomitant]
     Active Substance: TRIHEXYPHENIDYL HYDROCHLORIDE
  5. XANAX [Concomitant]
     Active Substance: ALPRAZOLAM
  6. SEROQUEL [Concomitant]
     Active Substance: QUETIAPINE FUMARATE
  7. TEGRETOL [Concomitant]
     Active Substance: CARBAMAZEPINE
  8. FLUPHENAZINE [Concomitant]
     Active Substance: FLUPHENAZINE
  9. SYMMETREL [Concomitant]
     Active Substance: AMANTADINE HYDROCHLORIDE
  10. IMBRUVICA [Suspect]
     Active Substance: IBRUTINIB
     Indication: CHRONIC LYMPHOCYTIC LEUKAEMIA
     Route: 048
     Dates: start: 20150805
  11. ZANTAC [Concomitant]
     Active Substance: RANITIDINE HYDROCHLORIDE
     Dates: end: 2015
  12. LIPITOR [Concomitant]
     Active Substance: ATORVASTATIN CALCIUM
  13. LEVOTHYROXINE. [Concomitant]
     Active Substance: LEVOTHYROXINE

REACTIONS (8)
  - Skin cancer [Unknown]
  - Haemorrhage [Unknown]
  - Increased tendency to bruise [Not Recovered/Not Resolved]
  - Vomiting [Recovered/Resolved]
  - Diarrhoea [Not Recovered/Not Resolved]
  - Gingival bleeding [Not Recovered/Not Resolved]
  - Fatigue [Not Recovered/Not Resolved]
  - Dyspepsia [Unknown]

NARRATIVE: CASE EVENT DATE: 2015
